FAERS Safety Report 7358576-0 (Version None)
Quarter: 2011Q1

REPORT INFORMATION
  Report Type: 
  Country: None (occurrence: None)
  Receive Date: 20110317
  Receipt Date: 20110308
  Transmission Date: 20110831
  Serious: Yes (Hospitalization, Disabling, Other)
  Sender: FDA-Public Use
  Company Number: US-MERCK-1009USA04498

PATIENT
  Age: 52 Year
  Sex: Female

DRUGS (7)
  1. CALCIUM (UNSPECIFIED) [Concomitant]
     Route: 065
  2. METHOTREXATE [Concomitant]
     Indication: RHEUMATOID ARTHRITIS
     Route: 065
     Dates: start: 19950101
  3. ALENDRONATE SODIUM [Suspect]
     Route: 048
     Dates: start: 20090316, end: 20090526
  4. EASPRIN [Concomitant]
     Indication: RHEUMATOID ARTHRITIS
     Route: 065
     Dates: start: 19870101, end: 20080101
  5. FOSAMAX [Suspect]
     Indication: OSTEOPOROSIS
     Route: 048
     Dates: start: 20000101, end: 20090709
  6. ENBREL [Concomitant]
     Indication: RHEUMATOID ARTHRITIS
     Route: 065
     Dates: start: 20000101
  7. SYNTHROID [Concomitant]
     Indication: THYROID DISORDER
     Route: 065
     Dates: start: 19800101

REACTIONS (26)
  - OSTEONECROSIS OF JAW [None]
  - STRESS FRACTURE [None]
  - RHEUMATOID ARTHRITIS [None]
  - BLOOD CHOLESTEROL INCREASED [None]
  - TONGUE DISCOLOURATION [None]
  - HYPERLIPIDAEMIA [None]
  - ADENOMA BENIGN [None]
  - HIATUS HERNIA [None]
  - DIVERTICULUM [None]
  - MELANOCYTIC NAEVUS [None]
  - GINGIVITIS [None]
  - GASTRIC DISORDER [None]
  - FALL [None]
  - COLONIC POLYP [None]
  - DRUG HYPERSENSITIVITY [None]
  - DENTAL CARIES [None]
  - DYSLIPIDAEMIA [None]
  - SEBORRHOEIC KERATOSIS [None]
  - DUODENITIS [None]
  - GASTROOESOPHAGEAL REFLUX DISEASE [None]
  - FEMUR FRACTURE [None]
  - FOOT FRACTURE [None]
  - GASTRITIS [None]
  - POLYP COLORECTAL [None]
  - MALIGNANT MELANOMA STAGE II [None]
  - SUBMAXILLARY GLAND ENLARGEMENT [None]
